FAERS Safety Report 8926768 (Version 2)
Quarter: 2013Q1

REPORT INFORMATION
  Report Type: Spontaneous
  Country: BR (occurrence: BR)
  Receive Date: 20121127
  Receipt Date: 20130111
  Transmission Date: 20140127
  Serious: Yes (Other)
  Sender: FDA-Public Use
  Company Number: BR-PFIZER INC-2012294611

PATIENT
  Age: 48 Year
  Sex: Female
  Weight: 56 kg

DRUGS (7)
  1. EFEXOR XR [Suspect]
     Indication: PANIC DISORDER
     Dosage: 1 CAPSULE (75 MG), 1X/DAY
     Route: 048
     Dates: start: 2005
  2. EFEXOR XR [Suspect]
     Indication: DEPRESSION
     Dosage: 1 CAPSULE (75 MG), 2X/DAY
  3. EFEXOR XR [Suspect]
     Dosage: 1 CAPSULE (75MG) AND 1 CAPSULE (37.5MG) A DAY
  4. EFEXOR XR [Suspect]
     Dosage: 37.5 MG, UNK
     Route: 048
     Dates: start: 20121115, end: 20121119
  5. CITALOPRAM [Suspect]
     Dosage: UNK
     Dates: start: 201211
  6. LEXAPRO [Suspect]
     Dosage: HALF TABLET OF 10MG (5MG), 1X/DAY
     Dates: start: 20121119
  7. STILNOX [Concomitant]
     Indication: SLEEP DISORDER
     Dosage: UNK
     Dates: start: 201209

REACTIONS (12)
  - Suicidal ideation [Recovered/Resolved]
  - Asphyxia [Recovered/Resolved]
  - Dyspnoea [Recovered/Resolved]
  - Confusional state [Recovered/Resolved]
  - Chest pain [Recovered/Resolved]
  - Heart rate increased [Recovered/Resolved]
  - Feeling abnormal [Recovered/Resolved]
  - Amnesia [Recovered/Resolved]
  - Uterine disorder [Unknown]
  - Feeling abnormal [Unknown]
  - Panic disorder [Unknown]
  - Mania [Unknown]
